FAERS Safety Report 11206081 (Version 1)
Quarter: 2015Q2

REPORT INFORMATION
  Report Type: Report from Study
  Country: US (occurrence: US)
  Receive Date: 20150622
  Receipt Date: 20150622
  Transmission Date: 20150821
  Serious: Yes (Other)
  Sender: FDA-Public Use
  Company Number: US-ALEXION PHARMACEUTICALS INC.-A201502202

PATIENT

DRUGS (3)
  1. SOLIRIS [Suspect]
     Active Substance: ECULIZUMAB
     Dosage: UNK, Q4W
     Route: 042
     Dates: end: 20150601
  2. SOLIRIS [Suspect]
     Active Substance: ECULIZUMAB
     Indication: HAEMOLYTIC URAEMIC SYNDROME
     Dosage: UNK
     Route: 042
  3. SOLIRIS [Suspect]
     Active Substance: ECULIZUMAB
     Dosage: UNK, Q3W
     Route: 042
     Dates: start: 20150601

REACTIONS (3)
  - Dry skin [Unknown]
  - Platelet count decreased [Unknown]
  - Arthropathy [Unknown]

NARRATIVE: CASE EVENT DATE: 20150601
